FAERS Safety Report 12175817 (Version 1)
Quarter: 2016Q1

REPORT INFORMATION
  Report Type: Spontaneous
  Country: US (occurrence: US)
  Receive Date: 20160314
  Receipt Date: 20160314
  Transmission Date: 20160526
  Serious: No
  Sender: FDA-Public Use
  Company Number: US-PFIZER INC-2016106456

PATIENT
  Sex: Female

DRUGS (1)
  1. LYRICA [Suspect]
     Active Substance: PREGABALIN
     Indication: NERVE INJURY
     Dosage: UNK

REACTIONS (8)
  - Pollakiuria [Unknown]
  - Abdominal distension [Unknown]
  - Asthma [Unknown]
  - Flatulence [Unknown]
  - Weight decreased [Unknown]
  - Constipation [Unknown]
  - Sleep apnoea syndrome [Unknown]
  - Fluid retention [Unknown]
